FAERS Safety Report 22391158 (Version 1)
Quarter: 2023Q2

REPORT INFORMATION
  Report Type: Spontaneous
  Country: JP (occurrence: JP)
  Receive Date: 20230601
  Receipt Date: 20230601
  Transmission Date: 20230721
  Serious: Yes (Other)
  Sender: FDA-Public Use
  Company Number: JP-BRISTOL-MYERS SQUIBB COMPANY-2023-073793

PATIENT
  Sex: Female

DRUGS (2)
  1. ORENCIA [Suspect]
     Active Substance: ABATACEPT
     Indication: Product used for unknown indication
     Route: 058
  2. ORENCIA [Suspect]
     Active Substance: ABATACEPT
     Route: 058

REACTIONS (19)
  - Off label use [Unknown]
  - Pain [Unknown]
  - White blood cell count decreased [Unknown]
  - Platelet distribution width decreased [Unknown]
  - Headache [Unknown]
  - Dry eye [Unknown]
  - Myosclerosis [Unknown]
  - Back pain [Unknown]
  - Musculoskeletal pain [Unknown]
  - Arthralgia [Unknown]
  - Pollakiuria [Unknown]
  - Injection site swelling [Unknown]
  - Sinusitis [Unknown]
  - Malaise [Unknown]
  - Fatigue [Unknown]
  - Vasodilatation [Unknown]
  - Vascular insufficiency [Unknown]
  - Feeling cold [Unknown]
  - Oedema peripheral [Unknown]
